FAERS Safety Report 21532226 (Version 13)
Quarter: 2023Q4

REPORT INFORMATION
  Report Type: Spontaneous
  Country: US (occurrence: US)
  Receive Date: 20221101
  Receipt Date: 20231003
  Transmission Date: 20240109
  Serious: Yes (Other)
  Sender: FDA-Public Use
  Company Number: US-GLAXOSMITHKLINE-US2022AMR154284

PATIENT

DRUGS (7)
  1. ZEJULA [Suspect]
     Active Substance: NIRAPARIB
     Indication: Malignant peritoneal neoplasm
     Dosage: 100 MG, QD
     Dates: start: 202210
  2. ZEJULA [Suspect]
     Active Substance: NIRAPARIB
     Indication: Retroperitoneal cancer
     Dosage: 300 MG, QD
  3. ZEJULA [Suspect]
     Active Substance: NIRAPARIB
     Dosage: 200 MG, QD (2 CAPSULE DAILY)
     Route: 048
     Dates: start: 202210
  4. ZEJULA [Suspect]
     Active Substance: NIRAPARIB
     Dosage: 100 MG, QD
     Dates: start: 202212
  5. ZEJULA [Suspect]
     Active Substance: NIRAPARIB
     Dosage: UNK, (100MG QD ALTERNATING WITH 200MG EVERY OTHER DAY)
     Dates: end: 20230125
  6. ZEJULA [Suspect]
     Active Substance: NIRAPARIB
     Dosage: 100 MG, QD
     Dates: start: 20230301
  7. ZEJULA [Suspect]
     Active Substance: NIRAPARIB
     Dosage: 300 MG, QD

REACTIONS (21)
  - Neuropathy peripheral [Unknown]
  - Pain [Not Recovered/Not Resolved]
  - Arthritis [Not Recovered/Not Resolved]
  - Abdominal pain upper [Recovering/Resolving]
  - Pain in extremity [Unknown]
  - Back pain [Recovering/Resolving]
  - Fatigue [Recovering/Resolving]
  - Platelet count decreased [Not Recovered/Not Resolved]
  - Abdominal pain [Unknown]
  - Haemoglobin decreased [Unknown]
  - Brain fog [Unknown]
  - Amnesia [Unknown]
  - Constipation [Unknown]
  - Dizziness [Unknown]
  - Insomnia [Unknown]
  - Carbohydrate antigen 125 increased [Not Recovered/Not Resolved]
  - Photosensitivity reaction [Unknown]
  - Headache [Unknown]
  - Off label use [Unknown]
  - Inappropriate schedule of product administration [Unknown]
  - Drug ineffective [Unknown]
